FAERS Safety Report 10217000 (Version 1)
Quarter: 2014Q2

REPORT INFORMATION
  Report Type: Report from Study
  Country: CA (occurrence: CA)
  Receive Date: 20140604
  Receipt Date: 20140604
  Transmission Date: 20141212
  Serious: Yes (Other)
  Sender: FDA-Public Use
  Company Number: CA-BRISTOL-MYERS SQUIBB COMPANY-20879011

PATIENT
  Age: 68 Year
  Sex: Female

DRUGS (26)
  1. ORENCIA [Suspect]
     Indication: RHEUMATOID ARTHRITIS
     Dosage: INTERRUPTED: 30APR2014
     Route: 042
     Dates: start: 20120815
  2. METHOTREXATE [Concomitant]
  3. TYLENOL EXTRA STRENGTH [Concomitant]
  4. ADVAIR [Concomitant]
  5. ARTIFICIAL TEARS [Concomitant]
  6. CALCIUM [Concomitant]
  7. CELEXA [Concomitant]
  8. VITAMIN B12 [Concomitant]
  9. FOLIC ACID [Concomitant]
  10. LASIX [Concomitant]
  11. GABAPENTIN [Concomitant]
  12. HYDROMORPH CONTIN [Concomitant]
  13. PLAQUENIL [Concomitant]
  14. NOVORAPID [Concomitant]
  15. PANTOLOC [Concomitant]
  16. MIRALAX [Concomitant]
  17. K-DUR [Concomitant]
  18. PREDNISONE [Concomitant]
  19. VENTOLIN [Concomitant]
  20. SALINEX [Concomitant]
  21. SPIRIVA [Concomitant]
  22. VITAMIN D [Concomitant]
  23. IMMOVANE [Concomitant]
  24. MAALOX [Concomitant]
  25. DILAUDID [Concomitant]
  26. ATIVAN [Concomitant]

REACTIONS (2)
  - Haemoglobin decreased [Unknown]
  - Herpes zoster [Unknown]
